FAERS Safety Report 16853909 (Version 1)
Quarter: 2019Q3

REPORT INFORMATION
  Report Type: Spontaneous
  Country: US (occurrence: US)
  Receive Date: 20190926
  Receipt Date: 20190926
  Transmission Date: 20191005
  Serious: No
  Sender: FDA-Public Use
  Company Number: US-BIOGEN-2019BI00742457

PATIENT
  Age: 49 Year
  Sex: Female

DRUGS (2)
  1. AVONEX [Suspect]
     Active Substance: INTERFERON BETA-1A
     Indication: MULTIPLE SCLEROSIS
     Route: 065
     Dates: start: 20000707
  2. AVONEX [Suspect]
     Active Substance: INTERFERON BETA-1A
     Route: 065
     Dates: start: 20180501

REACTIONS (13)
  - Nephrolithiasis [Unknown]
  - Oedema peripheral [Unknown]
  - Pain in extremity [Unknown]
  - Urinary tract infection [Unknown]
  - Frequent bowel movements [Unknown]
  - Insomnia [Unknown]
  - Vomiting [Unknown]
  - Multiple sclerosis [Unknown]
  - Peripheral coldness [Unknown]
  - Fall [Recovered/Resolved]
  - Nasopharyngitis [Unknown]
  - Pain [Unknown]
  - Muscular weakness [Unknown]

NARRATIVE: CASE EVENT DATE: 20000801
